FAERS Safety Report 8172508-7 (Version None)
Quarter: 2012Q1

REPORT INFORMATION
  Report Type: 
  Country: None (occurrence: None)
  Receive Date: 20120227
  Receipt Date: 20120227
  Transmission Date: 20120608
  Serious: Yes (Hospitalization)
  Sender: FDA-Public Use
  Company Number: None

PATIENT
  Age: 51 Year
  Sex: Male
  Weight: 71.7 kg

DRUGS (5)
  1. RIFAMPIN [Concomitant]
  2. ATENOLOL [Concomitant]
  3. PYRAZINAMIDE [Concomitant]
  4. ISONIAZID [Suspect]
     Indication: TUBERCULOSIS
     Dosage: PO
     Route: 048
     Dates: end: 20101129
  5. ETHAMBUTOL HYDROCHLORIDE [Concomitant]

REACTIONS (9)
  - HEPATITIS B SURFACE ANTIBODY POSITIVE [None]
  - BLOOD BILIRUBIN INCREASED [None]
  - INTERNATIONAL NORMALISED RATIO INCREASED [None]
  - NAUSEA [None]
  - JAUNDICE [None]
  - ALANINE AMINOTRANSFERASE ABNORMAL [None]
  - ASPARTATE AMINOTRANSFERASE ABNORMAL [None]
  - LIVER FUNCTION TEST ABNORMAL [None]
  - DECREASED APPETITE [None]
